FAERS Safety Report 8779035 (Version 2)
Quarter: 2012Q4

REPORT INFORMATION
  Report Type: 
  Country: FR (occurrence: FR)
  Receive Date: 20120912
  Receipt Date: 20120918
  Transmission Date: 20130627
  Serious: Yes (Hospitalization)
  Sender: FDA-Public Use
  Company Number: FR-PFIZER INC-2012220715

PATIENT
  Age: 62 Year
  Sex: Female

DRUGS (9)
  1. ALDACTONE [Suspect]
     Dosage: UNK
     Route: 048
  2. TAHOR [Suspect]
     Dosage: UNK
     Route: 048
  3. HYDROXYZINE HCL [Suspect]
     Dosage: UNK
     Route: 048
  4. APROVEL [Suspect]
     Dosage: 300 mg, UNK
     Route: 048
  5. ATENOLOL [Suspect]
     Dosage: UNK
     Route: 048
  6. KARDEGIC [Suspect]
     Dosage: UNK
     Route: 048
  7. LEXOMIL [Suspect]
     Dosage: UNK
     Route: 048
  8. VICTOZA [Suspect]
     Dosage: 6 mg/ml, UNK
     Route: 058
  9. APIDRA [Suspect]
     Dosage: UNK
     Route: 058

REACTIONS (1)
  - Vascular purpura [Recovering/Resolving]
